FAERS Safety Report 8423422-0 (Version None)
Quarter: 2012Q2

REPORT INFORMATION
  Report Type: 
  Country: None (occurrence: None)
  Receive Date: 20120608
  Receipt Date: 20120525
  Transmission Date: 20120825
  Serious: Yes (Hospitalization, Other)
  Sender: FDA-Public Use
  Company Number: PHFR2012IE001022

PATIENT
  Sex: Male

DRUGS (9)
  1. ZIMOVANE [Concomitant]
     Indication: POOR QUALITY SLEEP
     Dosage: 7.5 MG, DAILY
     Route: 048
     Dates: start: 20020101, end: 20111219
  2. CLOZARIL [Suspect]
     Dosage: 375 MG, (50 MG AT AM AND 325 MG AT PM)
     Route: 048
  3. CLOZARIL [Suspect]
     Dosage: 350 MG (50 MG AT AM AND 300 MG AT PM)
     Route: 048
  4. LEXOTAN [Concomitant]
     Indication: AGITATION
     Dosage: 1.5 MG, BID
     Route: 048
     Dates: start: 20031101
  5. CLOZARIL [Suspect]
     Indication: SCHIZOPHRENIA, PARANOID TYPE
     Dosage: 400 MG DAILY
     Route: 048
     Dates: start: 20110912
  6. RISPERIDONE [Concomitant]
     Dosage: 2 MG, NOCTE
  7. RISPERIDONE [Concomitant]
     Indication: SCHIZOPHRENIA, PARANOID TYPE
     Dosage: 5 MG, BID
     Route: 048
     Dates: start: 20041101
  8. VALPROIC ACID [Concomitant]
     Dosage: 300 MG, BID
  9. CLOZARIL [Suspect]
     Dosage: 400 MG (100 AT AM AND 300 MG AT PM)
     Route: 048
     Dates: start: 20111015

REACTIONS (7)
  - NEUTROPHIL COUNT INCREASED [None]
  - BLOOD CREATINE PHOSPHOKINASE INCREASED [None]
  - LOSS OF CONSCIOUSNESS [None]
  - WHITE BLOOD CELL COUNT INCREASED [None]
  - ELECTROENCEPHALOGRAM ABNORMAL [None]
  - BLOOD GLUCOSE INCREASED [None]
  - GRAND MAL CONVULSION [None]
